FAERS Safety Report 21625512 (Version 4)
Quarter: 2023Q1

REPORT INFORMATION
  Report Type: Report from Study
  Country: US (occurrence: None)
  Receive Date: 20221122
  Receipt Date: 20230329
  Transmission Date: 20230417
  Serious: Yes (Hospitalization)
  Sender: FDA-Public Use
  Company Number: US-ROCHE-3218733

PATIENT
  Age: 20 Year
  Sex: Male
  Weight: 76.7 kg

DRUGS (4)
  1. OBINUTUZUMAB [Suspect]
     Active Substance: OBINUTUZUMAB
     Indication: Focal segmental glomerulosclerosis
     Route: 042
     Dates: start: 20220622
  2. OBINUTUZUMAB [Suspect]
     Active Substance: OBINUTUZUMAB
     Route: 042
     Dates: start: 20220707
  3. ATIVAN [Concomitant]
     Active Substance: LORAZEPAM
     Dosage: COUPLE OF MONTHS
  4. KLONOPIN [Concomitant]
     Active Substance: CLONAZEPAM

REACTIONS (5)
  - Seizure [Unknown]
  - Chest pain [Unknown]
  - Abdominal pain [Unknown]
  - Suicidal ideation [Unknown]
  - Dyspnoea [Unknown]

NARRATIVE: CASE EVENT DATE: 20221021
